FAERS Safety Report 17149391 (Version 1)
Quarter: 2019Q4

REPORT INFORMATION
  Report Type: Spontaneous
  Country: JP (occurrence: JP)
  Receive Date: 20191213
  Receipt Date: 20191213
  Transmission Date: 20200122
  Serious: Yes (Other)
  Sender: FDA-Public Use
  Company Number: JP-EMD SERONO-9133814

PATIENT
  Age: 33 Year
  Sex: Female

DRUGS (9)
  1. HUMAN MENOPAUSAL GONADOTROPHIN [Concomitant]
     Active Substance: GONADOTROPHIN, CHORIONIC
     Indication: CONTROLLED OVARIAN STIMULATION
     Route: 030
     Dates: start: 20191114, end: 20191116
  2. HUMAN MENOPAUSAL GONADOTROPHIN [Concomitant]
     Active Substance: GONADOTROPHIN, CHORIONIC
     Route: 030
     Dates: start: 20191118, end: 20191118
  3. CABASER [Concomitant]
     Active Substance: CABERGOLINE
     Dosage: UNKNOWN DOSAGE
     Route: 048
     Dates: start: 20191127, end: 20191129
  4. GONAL-F [Concomitant]
     Active Substance: FOLLITROPIN
     Indication: CONTROLLED OVARIAN STIMULATION
     Dosage: DOSE: 100 IU ON 14 AND 17 NOV 2019
     Route: 058
     Dates: start: 20191114, end: 20191117
  5. GONAL-F [Concomitant]
     Active Substance: FOLLITROPIN
     Route: 058
     Dates: start: 20191119, end: 20191120
  6. BUSERECUR [Concomitant]
     Active Substance: BUSERELIN ACETATE
     Indication: HYPOTHALAMO-PITUITARY DISORDER
     Dosage: EVERY 12 HOURS, VIA LEFT AND RIGHT NASAL CAVITIES
     Route: 045
     Dates: start: 20191114, end: 20191123
  7. CABASER [Concomitant]
     Active Substance: CABERGOLINE
     Indication: OVULATION INDUCTION
     Route: 048
     Dates: start: 20191123, end: 20191127
  8. OVIDREL [Suspect]
     Active Substance: CHORIOGONADOTROPIN ALFA
     Indication: CONTROLLED OVARIAN STIMULATION
     Route: 058
     Dates: start: 20191114, end: 20191114
  9. OVIDREL [Suspect]
     Active Substance: CHORIOGONADOTROPIN ALFA
     Dosage: SELF INJECTION
     Route: 058
     Dates: start: 20191123, end: 20191123

REACTIONS (3)
  - Palpitations [Recovered/Resolved]
  - Ascites [Recovering/Resolving]
  - Ovarian hyperstimulation syndrome [Recovering/Resolving]

NARRATIVE: CASE EVENT DATE: 20191128
